FAERS Safety Report 7395077-8 (Version None)
Quarter: 2011Q1

REPORT INFORMATION
  Report Type: 
  Country: None (occurrence: None)
  Receive Date: 20110325
  Receipt Date: 20110322
  Transmission Date: 20110831
  Serious: Yes (Hospitalization)
  Sender: FDA-Public Use
  Company Number: 2010SP044366

PATIENT
  Sex: Male

DRUGS (4)
  1. DEPO-MEDROL [Suspect]
     Indication: SEASONAL ALLERGY
     Dosage: 2 ML, ONCE, IA
     Route: 014
     Dates: start: 20070604
  2. BENADRYL [Concomitant]
  3. LIVOSTIN [Concomitant]
  4. DIPROSPAN (BETAMETHASONE SODIUM PHOSPHATE/DIPROPIONATE) (BETAMETHASONE [Suspect]
     Indication: SEASONAL ALLERGY
     Dosage: 1 ML, ONCE IA
     Route: 014
     Dates: start: 20070607

REACTIONS (2)
  - BIPOLAR I DISORDER [None]
  - SELF ESTEEM DECREASED [None]
